FAERS Safety Report 12427135 (Version 1)
Quarter: 2016Q2

REPORT INFORMATION
  Report Type: Report from Study
  Country: US (occurrence: US)
  Receive Date: 20160601
  Receipt Date: 20160601
  Transmission Date: 20160815
  Serious: No
  Sender: FDA-Public Use
  Company Number: US-AMGEN-USASL2016069588

PATIENT
  Age: 57 Year
  Sex: Male

DRUGS (1)
  1. ENBREL [Suspect]
     Active Substance: ETANERCEPT
     Indication: PRODUCT USED FOR UNKNOWN INDICATION
     Dosage: UNK
     Route: 065

REACTIONS (6)
  - Injection site extravasation [Unknown]
  - Injection site swelling [Unknown]
  - Pain in extremity [Unknown]
  - Injection site pain [Unknown]
  - Cataract [Unknown]
  - Back pain [Unknown]

NARRATIVE: CASE EVENT DATE: 20160528
